FAERS Safety Report 6840306-X (Version None)
Quarter: 2010Q2

REPORT INFORMATION
  Report Type: 
  Country: None (occurrence: None)
  Receive Date: 20100629
  Receipt Date: 20100423
  Transmission Date: 20101027
  Serious: No
  Sender: FDA-Public Use
  Company Number: US-WYE-H14783510

PATIENT

DRUGS (1)
  1. PRISTIQ (DESVENLAFAXINE SUCCISNATE MONOHYDRATE, TABLET, EXTENDED RELEA [Suspect]

REACTIONS (1)
  - INTRAOCULAR PRESSURE INCREASED [None]
